FAERS Safety Report 9056703 (Version 1)
Quarter: 2013Q1

REPORT INFORMATION
  Report Type: Spontaneous
  Country: US (occurrence: US)
  Receive Date: 20130204
  Receipt Date: 20130204
  Transmission Date: 20140127
  Serious: No
  Sender: FDA-Public Use
  Company Number: US-009507513-1301USA014499

PATIENT
  Sex: Female

DRUGS (3)
  1. SIMVASTATIN [Suspect]
     Route: 065
  2. LIPITOR [Suspect]
     Indication: BLOOD CHOLESTEROL INCREASED
     Dosage: 10 MG, UNK
     Route: 065
     Dates: start: 2010
  3. LIPITOR [Suspect]
     Indication: BLOOD TRIGLYCERIDES INCREASED

REACTIONS (4)
  - Blood cholesterol increased [Unknown]
  - Cataract operation [Unknown]
  - Malaise [Unknown]
  - Blood triglycerides increased [Unknown]
